FAERS Safety Report 24080039 (Version 1)
Quarter: 2024Q3

REPORT INFORMATION
  Report Type: Spontaneous
  Country: AU (occurrence: AU)
  Receive Date: 20240711
  Receipt Date: 20240711
  Transmission Date: 20241017
  Serious: Yes (Other)
  Sender: GE HEALTHCARE
  Company Number: AU-GE HEALTHCARE-2024CSU007582

PATIENT
  Age: 63 Year
  Sex: Male
  Weight: 85 kg

DRUGS (2)
  1. OMNIPAQUE [Suspect]
     Active Substance: IOHEXOL
     Indication: Urogram
     Dosage: 60 ML, TOTAL
     Route: 042
     Dates: start: 20240702, end: 20240702
  2. OMNIPAQUE [Suspect]
     Active Substance: IOHEXOL
     Dosage: 33 ML, TOTAL
     Route: 042
     Dates: start: 20240702, end: 20240702

REACTIONS (6)
  - Dry eye [Recovered/Resolved]
  - Headache [Recovered/Resolved]
  - Eye pruritus [Recovered/Resolved]
  - Contrast media allergy [Recovering/Resolving]
  - Feeling hot [Recovering/Resolving]
  - Dysgeusia [Recovering/Resolving]

NARRATIVE: CASE EVENT DATE: 20240702
